FAERS Safety Report 25025074 (Version 1)
Quarter: 2025Q1

REPORT INFORMATION
  Report Type: Spontaneous
  Country: US (occurrence: None)
  Receive Date: 20250228
  Receipt Date: 20250228
  Transmission Date: 20250408
  Serious: No
  Sender: FDA-CTU
  Company Number: None

PATIENT
  Age: 59 Year
  Sex: Female

DRUGS (2)
  1. CEFAZOLIN [Suspect]
     Active Substance: CEFAZOLIN
     Dates: start: 20200805
  2. CEFTRIAXONE [Suspect]
     Active Substance: CEFTRIAXONE

REACTIONS (2)
  - Drug reaction with eosinophilia and systemic symptoms [None]
  - Documented hypersensitivity to administered product [None]

NARRATIVE: CASE EVENT DATE: 20200805
